FAERS Safety Report 17916592 (Version 1)
Quarter: 2020Q2

REPORT INFORMATION
  Report Type: Spontaneous
  Country: DE (occurrence: DE)
  Receive Date: 20200619
  Receipt Date: 20200619
  Transmission Date: 20200714
  Serious: Yes (Hospitalization)
  Sender: FDA-Public Use
  Company Number: DE-TEVA-2020-DE-1788875

PATIENT
  Age: 78 Year
  Sex: Female

DRUGS (8)
  1. LORAZEPAM. [Suspect]
     Active Substance: LORAZEPAM
     Dosage: 2.5 MG, 1X,
     Route: 048
  2. PIPAMPERON [Interacting]
     Active Substance: PIPAMPERONE HYDROCHLORIDE
     Dosage: 40 MG, 2X,
     Route: 048
  3. TORASEMID [Concomitant]
     Active Substance: TORSEMIDE
     Dosage: .5 DOSAGE FORMS DAILY; 10 MG, 0.5-0-0-0,
     Route: 048
  4. METAMIZOL [Concomitant]
     Active Substance: METAMIZOLE SODIUM
     Dosage: 500 MG, 3X
     Route: 048
  5. QUETIAPIN [Interacting]
     Active Substance: QUETIAPINE
     Dosage: 150 MILLIGRAM DAILY; 50 MG, 1-1-1-0,
     Route: 048
  6. RISPERIDON [Interacting]
     Active Substance: RISPERIDONE
     Dosage: 1.5 MILLIGRAM DAILY; 1-1-1-0,
     Route: 048
  7. ELIQUIS [Interacting]
     Active Substance: APIXABAN
     Dosage: 5 MILLIGRAM DAILY; 2.5 MG, 1-0-1-0
     Route: 048
  8. PARACETAMOL [Concomitant]
     Active Substance: ACETAMINOPHEN
     Dosage: 500 MG, 8X,
     Route: 048

REACTIONS (5)
  - General physical health deterioration [Unknown]
  - Fatigue [Unknown]
  - Dizziness [Unknown]
  - Labelled drug-drug interaction medication error [Unknown]
  - Fall [Unknown]
